FAERS Safety Report 5686801-0 (Version None)
Quarter: 2008Q1

REPORT INFORMATION
  Report Type: 
  Country: None (occurrence: None)
  Receive Date: 20080328
  Receipt Date: 20070511
  Transmission Date: 20080703
  Serious: No
  Sender: FDA-Public Use
  Company Number: US-BAYER-US-2007-017469

PATIENT
  Sex: Female

DRUGS (1)
  1. MIRENA [Suspect]
     Route: 015
     Dates: start: 20060101

REACTIONS (4)
  - ACNE [None]
  - AMENORRHOEA [None]
  - DRUG INEFFECTIVE [None]
  - MENSTRUAL DISORDER [None]
